FAERS Safety Report 24161242 (Version 3)
Quarter: 2024Q3

REPORT INFORMATION
  Report Type: Spontaneous
  Country: GB (occurrence: GB)
  Receive Date: 20240801
  Receipt Date: 20240827
  Transmission Date: 20241017
  Serious: Yes (Other)
  Sender: RANBAXY
  Company Number: GB-SUN PHARMACEUTICAL INDUSTRIES LTD-2024R1-459637

PATIENT
  Age: 12 Year
  Sex: Male

DRUGS (6)
  1. AZITHROMYCIN [Suspect]
     Active Substance: AZITHROMYCIN
     Indication: Chemotherapy
     Dosage: 10 MILLIGRAM/KILOGRAM, DAILY
     Route: 048
     Dates: start: 202108
  2. AZITHROMYCIN [Suspect]
     Active Substance: AZITHROMYCIN
     Indication: Mycobacterium abscessus infection
     Dosage: 250 MILLIGRAM ONCE DAILY
     Route: 048
     Dates: start: 202108
  3. AMIKACIN [Concomitant]
     Active Substance: AMIKACIN
     Indication: Chemotherapy
     Dosage: UNK
     Route: 065
  4. AMIKACIN [Concomitant]
     Active Substance: AMIKACIN
     Indication: Mycobacterium abscessus infection
  5. CLOFAZIMINE [Concomitant]
     Active Substance: CLOFAZIMINE
     Indication: Chemotherapy
     Dosage: UNK
     Route: 048
  6. CLOFAZIMINE [Concomitant]
     Active Substance: CLOFAZIMINE
     Indication: Mycobacterium abscessus infection

REACTIONS (1)
  - Deafness transitory [Recovering/Resolving]

NARRATIVE: CASE EVENT DATE: 20210801
